FAERS Safety Report 9448888 (Version 1)
Quarter: 2013Q3

REPORT INFORMATION
  Report Type: Spontaneous
  Country: JP (occurrence: JP)
  Receive Date: 20130808
  Receipt Date: 20130808
  Transmission Date: 20140515
  Serious: Yes (Other)
  Sender: FDA-Public Use
  Company Number: JP-OTSUKA-JP-2013-10145

PATIENT
  Sex: 0

DRUGS (1)
  1. SAMSCA [Suspect]
     Dosage: UNK
     Route: 048

REACTIONS (1)
  - Blood sodium decreased [Unknown]
